FAERS Safety Report 8960554 (Version 1)
Quarter: 2012Q4

REPORT INFORMATION
  Report Type: Spontaneous
  Country: TR (occurrence: None)
  Receive Date: 20121203
  Receipt Date: 20121203
  Transmission Date: 20130627
  Serious: Yes (Hospitalization, Other)
  Sender: FDA-Public Use
  Company Number: TR-AGG-11-2012-0522

PATIENT
  Age: 58 Year
  Sex: Male

DRUGS (8)
  1. TIROFIBAN HYDROCHLORIDE [Suspect]
     Indication: CORONARY ANGIOPLASTY
     Dosage: 0.2ug/kg x 1, 1 x a minute intravenous
     Route: 042
  2. TIROFIBAN HYDROCHLORIDE [Suspect]
     Dosage: 0.05ug/kg x 1, 1 x a minute intravenous
     Route: 042
  3. CLOPIDOGREL [Concomitant]
  4. ASPIRIN [Concomitant]
  5. SIMVASTATIN [Concomitant]
  6. PROPRANOLOL HYDROCHLORIDE [Concomitant]
  7. ACETAMINIPHEN [Concomitant]
  8. HEPARIN [Concomitant]

REACTIONS (3)
  - Thrombocytopenia [None]
  - Anaemia [None]
  - Coombs test positive [None]
